FAERS Safety Report 18957294 (Version 5)
Quarter: 2022Q1

REPORT INFORMATION
  Report Type: Report from Study
  Country: US (occurrence: US)
  Receive Date: 20210302
  Receipt Date: 20220218
  Transmission Date: 20220423
  Serious: Yes (Hospitalization)
  Sender: FDA-Public Use
  Company Number: NVSC2021US038774

PATIENT
  Sex: Female
  Weight: 93.9 kg

DRUGS (6)
  1. ENTRESTO [Suspect]
     Active Substance: SACUBITRIL\VALSARTAN
     Indication: Product used for unknown indication
     Dosage: UNK, BID
     Route: 048
  2. ENTRESTO [Suspect]
     Active Substance: SACUBITRIL\VALSARTAN
     Dosage: UNK
     Route: 048
  3. ELIQUIS [Concomitant]
     Active Substance: APIXABAN
     Indication: Product used for unknown indication
     Dosage: 5 MG, BID
     Route: 065
  4. LASIX [Concomitant]
     Active Substance: FUROSEMIDE
     Indication: Product used for unknown indication
     Dosage: 40 MG, QD
     Route: 065
  5. METOPROLOL [Concomitant]
     Active Substance: METOPROLOL
     Indication: Product used for unknown indication
     Dosage: 50 MG, QD
     Route: 065
  6. SPIRONOLACTONE [Concomitant]
     Active Substance: SPIRONOLACTONE
     Indication: Product used for unknown indication
     Dosage: 25 MG, QD
     Route: 065

REACTIONS (19)
  - Cardiac failure [Unknown]
  - Heart rate increased [Unknown]
  - Dyspnoea [Unknown]
  - Pneumonia [Unknown]
  - Throat clearing [Unknown]
  - Sinusitis [Unknown]
  - Palpitations [Unknown]
  - Extrasystoles [Unknown]
  - Chest pain [Unknown]
  - Hypoacusis [Unknown]
  - Breath sounds abnormal [Unknown]
  - Memory impairment [Unknown]
  - Oxygen consumption increased [Unknown]
  - COVID-19 [Recovering/Resolving]
  - Rhinorrhoea [Unknown]
  - Hypersensitivity [Unknown]
  - Fatigue [Unknown]
  - Dizziness [Unknown]
  - Cough [Unknown]
